FAERS Safety Report 23797910 (Version 1)
Quarter: 2024Q2

REPORT INFORMATION
  Report Type: Spontaneous
  Country: ES (occurrence: ES)
  Receive Date: 20240430
  Receipt Date: 20240430
  Transmission Date: 20240716
  Serious: Yes (Hospitalization, Other)
  Sender: FDA-Public Use
  Company Number: ES-EMA-DD-20240402-7482645-074352

PATIENT
  Age: 75 Year
  Sex: Female

DRUGS (3)
  1. CARBOPLATIN [Suspect]
     Active Substance: CARBOPLATIN
     Indication: Breast cancer
     Dosage: AUC6 EVERY 3 WEEKS
  2. HERCEPTIN [Suspect]
     Active Substance: TRASTUZUMAB
     Indication: Breast cancer
     Dosage: 6 MG/KG/12 MONTHS
  3. TAXOTERE [Suspect]
     Active Substance: DOCETAXEL
     Indication: Breast cancer
     Dosage: EVERY 3 WEEKS, STRENGTH: 75

REACTIONS (9)
  - Distichiasis [Unknown]
  - Meibomianitis [Unknown]
  - Vulvovaginal inflammation [Recovering/Resolving]
  - Anal inflammation [Recovering/Resolving]
  - Trichiasis [Unknown]
  - Noninfective conjunctivitis [Recovering/Resolving]
  - Blepharitis [Unknown]
  - Dry eye [Unknown]
  - Entropion [Unknown]
